FAERS Safety Report 6491928-X (Version None)
Quarter: 2009Q4

REPORT INFORMATION
  Report Type: 
  Country: None (occurrence: None)
  Receive Date: 20091208
  Receipt Date: 20091123
  Transmission Date: 20100525
  Serious: Yes (Hospitalization)
  Sender: FDA-Public Use
  Company Number: 09-102-1

PATIENT

DRUGS (2)
  1. CEFTRIAXONE [Suspect]
     Indication: ENTEROCOCCAL INFECTION
     Dosage: 2-4 GRAMS PER DAY
  2. AMPICILLIN [Suspect]
     Indication: ENTEROCOCCAL INFECTION
     Dosage: 8-16 GRAMS PER DAY

REACTIONS (1)
  - DRUG INTERACTION [None]
